FAERS Safety Report 18341449 (Version 1)
Quarter: 2020Q4

REPORT INFORMATION
  Report Type: Spontaneous
  Country: PL (occurrence: PL)
  Receive Date: 20201004
  Receipt Date: 20201004
  Transmission Date: 20210113
  Serious: Yes (Death, Hospitalization, Other)
  Sender: FDA-Public Use
  Company Number: PL-B.I. PHARMACEUTICALS,INC./RIDGEFIELD-2020-BI-052039

PATIENT
  Age: 76 Year
  Sex: Male
  Weight: 80 kg

DRUGS (1)
  1. PRAXBIND [Suspect]
     Active Substance: IDARUCIZUMAB
     Indication: PROCOAGULANT THERAPY
     Dosage: 2 X 2.5G IN THE OPERATING ROOM BEFORE CONNECTING TO EXTRACORPOREAL CIRCULATION.?FORMULATION: INTRAVE
     Dates: start: 20190417

REACTIONS (4)
  - Cardiogenic shock [Unknown]
  - Cardiomyopathy [Unknown]
  - Death [Fatal]
  - Post procedural haemorrhage [Unknown]
